FAERS Safety Report 5979226-1 (Version None)
Quarter: 2008Q4

REPORT INFORMATION
  Report Type: 
  Country: None (occurrence: None)
  Receive Date: 20081204
  Receipt Date: 20081121
  Transmission Date: 20090506
  Serious: Yes (Hospitalization)
  Sender: FDA-Public Use
  Company Number: DE-CELGENEUS-062-21880-08101953

PATIENT
  Sex: Female
  Weight: 62.7 kg

DRUGS (10)
  1. REVLIMID [Suspect]
     Indication: MULTIPLE MYELOMA
     Route: 048
     Dates: start: 20080714
  2. REVLIMID [Suspect]
     Route: 048
     Dates: start: 20080601
  3. DEXAMETHASONE [Concomitant]
     Indication: MULTIPLE MYELOMA
     Route: 048
     Dates: start: 20080714
  4. DEXAMETHASONE [Concomitant]
     Route: 065
     Dates: start: 20080601
  5. PREGABALIN [Concomitant]
     Indication: POST HERPETIC NEURALGIA
     Route: 048
     Dates: start: 20080601
  6. METAMIZOL [Concomitant]
     Indication: POST HERPETIC NEURALGIA
     Route: 048
     Dates: start: 20080601
  7. VALACICLOVIR - HCL [Concomitant]
     Indication: HERPES ZOSTER
     Route: 065
     Dates: start: 20070401
  8. ASPIRIN [Concomitant]
     Indication: THROMBOSIS PROPHYLAXIS
     Route: 065
     Dates: start: 20080801
  9. ZOLEDRON [Concomitant]
     Indication: DRUG USE FOR UNKNOWN INDICATION
     Route: 065
     Dates: start: 20080601
  10. NADROPARIN CALCIUM [Concomitant]
     Indication: THROMBOSIS PROPHYLAXIS
     Route: 058
     Dates: start: 20081029, end: 20081104

REACTIONS (1)
  - ERYSIPELAS [None]
